FAERS Safety Report 9067553 (Version 1)
Quarter: 2013Q1

REPORT INFORMATION
  Report Type: Spontaneous
  Country: EC (occurrence: EC)
  Receive Date: 20130214
  Receipt Date: 20130214
  Transmission Date: 20140127
  Serious: Yes (Life-Threatening, Hospitalization, Disabling, Other)
  Sender: FDA-Public Use
  Company Number: EC-B.I. PHARMACEUTICALS,INC./RIDGEFIELD-2013-RA-00025RA

PATIENT
  Age: 45 Year
  Sex: Female

DRUGS (1)
  1. PRADAXA [Suspect]
     Indication: HEART VALVE REPLACEMENT
     Dosage: 220 MG
     Route: 048
     Dates: start: 2010, end: 20130114

REACTIONS (2)
  - Cardiac valve replacement complication [Not Recovered/Not Resolved]
  - Cardiac failure [Not Recovered/Not Resolved]
